FAERS Safety Report 8953409 (Version 1)
Quarter: 2012Q4

REPORT INFORMATION
  Report Type: 
  Country: US (occurrence: US)
  Receive Date: 20121206
  Receipt Date: 20121206
  Transmission Date: 20130627
  Serious: No
  Sender: FDA-Public Use
  Company Number: US-009507513-1212USA001043

PATIENT

DRUGS (1)
  1. PRIMAXIN I.V. [Suspect]
     Dosage: UNK
     Route: 042

REACTIONS (2)
  - Product solubility abnormal [Unknown]
  - Incorrect dose administered [Unknown]
